FAERS Safety Report 10181462 (Version 3)
Quarter: 2018Q4

REPORT INFORMATION
  Report Type: Report from Study
  Country: US (occurrence: US)
  Receive Date: 20140519
  Receipt Date: 20181008
  Transmission Date: 20190204
  Serious: Yes (Hospitalization, Other)
  Sender: FDA-Public Use
  Company Number: US-SA-2014SA062119

PATIENT
  Age: 66 Year
  Sex: Male
  Weight: 129.27 kg

DRUGS (6)
  1. INSULIN GLARGINE [Suspect]
     Active Substance: INSULIN GLARGINE
     Indication: DIABETES MELLITUS
     Dosage: ONCE OR TWICE DAILY
     Route: 065
     Dates: start: 2004, end: 201403
  2. INSULIN GLARGINE [Suspect]
     Active Substance: INSULIN GLARGINE
     Dosage: 100 U, ONCE OR TWICE A DAY
     Dates: start: 201005
  3. INSULIN LISPRO [Suspect]
     Active Substance: INSULIN LISPRO
     Dosage: UNK
     Route: 065
     Dates: end: 201403
  4. INSULIN LISPRO [Suspect]
     Active Substance: INSULIN LISPRO
     Dosage: UNK
     Route: 065
  5. INSULIN GLARGINE [Suspect]
     Active Substance: INSULIN GLARGINE
     Dosage: 130 DF,HS
     Route: 065
     Dates: start: 2014
  6. INSULIN GLARGINE [Suspect]
     Active Substance: INSULIN GLARGINE
     Dosage: 50 DF,BID
     Route: 065

REACTIONS (10)
  - Myocardial infarction [Recovered/Resolved]
  - Heart rate irregular [Recovered/Resolved]
  - Upper limb fracture [Not Recovered/Not Resolved]
  - Pituitary tumour [Not Recovered/Not Resolved]
  - Heart rate decreased [Recovered/Resolved]
  - Loss of personal independence in daily activities [Not Recovered/Not Resolved]
  - Decreased appetite [Unknown]
  - Product use issue [Unknown]
  - Vascular graft [Unknown]
  - Fall [Unknown]

NARRATIVE: CASE EVENT DATE: 2007
